FAERS Safety Report 12969700 (Version 1)
Quarter: 2016Q4

REPORT INFORMATION
  Report Type: Spontaneous
  Country: US (occurrence: US)
  Receive Date: 20161123
  Receipt Date: 20161123
  Transmission Date: 20170207
  Serious: No
  Sender: FDA-Public Use
  Company Number: US-PERRIGO-16US000433

PATIENT
  Age: 48 Year
  Sex: Male
  Weight: 99.77 kg

DRUGS (1)
  1. NICOTINE POLACRILEX [Suspect]
     Active Substance: NICOTINE
     Indication: SMOKING CESSATION THERAPY
     Dosage: 4 MG, QD
     Route: 002
     Dates: start: 20160102, end: 20160104

REACTIONS (1)
  - Oral discomfort [Recovered/Resolved]

NARRATIVE: CASE EVENT DATE: 20160102
